FAERS Safety Report 20657188 (Version 1)
Quarter: 2022Q1

REPORT INFORMATION
  Report Type: Spontaneous
  Country: FR (occurrence: FR)
  Receive Date: 20220331
  Receipt Date: 20220331
  Transmission Date: 20220423
  Serious: Yes (Hospitalization, Disabling, Congenital Anomaly, Other)
  Sender: FDA-Public Use
  Company Number: FR-ABBVIE-21K-056-3973447-00

PATIENT
  Age: 53 Year
  Sex: Male

DRUGS (2)
  1. VALPROATE SODIUM [Suspect]
     Active Substance: VALPROATE SODIUM
     Indication: Epilepsy
     Route: 065
     Dates: start: 1988, end: 2016
  2. VALPROATE SODIUM [Suspect]
     Active Substance: VALPROATE SODIUM
     Indication: Product used for unknown indication
     Route: 048
     Dates: end: 2016

REACTIONS (29)
  - Disability [Unknown]
  - Loss of consciousness [Unknown]
  - Autism spectrum disorder [Unknown]
  - Epilepsy [Unknown]
  - Bipolar disorder [Unknown]
  - Laryngitis [Unknown]
  - Chills [Unknown]
  - Dysgeusia [Unknown]
  - Hot flush [Unknown]
  - Speech disorder [Unknown]
  - Anxiety [Unknown]
  - Fatigue [Unknown]
  - Pyrexia [Unknown]
  - Headache [Unknown]
  - Eye disorder [Unknown]
  - Depression [Unknown]
  - Memory impairment [Unknown]
  - Red blood cell count decreased [Unknown]
  - White blood cell count decreased [Unknown]
  - Platelet count decreased [Unknown]
  - Weight increased [Unknown]
  - Memory impairment [Unknown]
  - Alopecia [Unknown]
  - Cognitive disorder [Unknown]
  - Condition aggravated [Unknown]
  - Unevaluable event [Unknown]
  - Speech disorder [Unknown]
  - Globulins decreased [Unknown]
  - Drug ineffective [Unknown]
